FAERS Safety Report 8015611-4 (Version None)
Quarter: 2011Q4

REPORT INFORMATION
  Report Type: 
  Country: None (occurrence: None)
  Receive Date: 20111230
  Receipt Date: 20111220
  Transmission Date: 20120403
  Serious: Yes (Hospitalization)
  Sender: FDA-Public Use
  Company Number: US-ELI_LILLY_AND_COMPANY-US201110005796

PATIENT
  Sex: Female
  Weight: 72.109 kg

DRUGS (4)
  1. METFORMIN HCL [Concomitant]
     Dosage: 500 MG, BID
  2. FORTEO [Suspect]
     Dosage: UNK UNK, QD
     Route: 065
     Dates: start: 20111024
  3. FORTEO [Suspect]
     Indication: OSTEOPOROSIS
     Dosage: UNK UNK, QD
     Route: 065
     Dates: start: 20111001, end: 20111018
  4. LIPITOR [Concomitant]
     Dosage: 40 MG, QD

REACTIONS (2)
  - GALLBLADDER DISORDER [None]
  - FATIGUE [None]
